FAERS Safety Report 20740876 (Version 1)
Quarter: 2022Q2

REPORT INFORMATION
  Report Type: Spontaneous
  Country: US (occurrence: None)
  Receive Date: 20220422
  Receipt Date: 20220422
  Transmission Date: 20220720
  Serious: No
  Sender: FDA-Public Use
  Company Number: None

PATIENT
  Age: 76 Year
  Sex: Female

DRUGS (1)
  1. HISTAMINE DIHYDROCHLORIDE [Suspect]
     Active Substance: HISTAMINE DIHYDROCHLORIDE

REACTIONS (4)
  - Chronic fatigue syndrome [None]
  - Condition aggravated [None]
  - Blood pressure increased [None]
  - Heart rate increased [None]

NARRATIVE: CASE EVENT DATE: 20220402
